FAERS Safety Report 7450999-4 (Version None)
Quarter: 2011Q2

REPORT INFORMATION
  Report Type: 
  Country: None (occurrence: None)
  Receive Date: 20110502
  Receipt Date: 20110414
  Transmission Date: 20111010
  Serious: No
  Sender: FDA-Public Use
  Company Number: ES-ASTRAZENECA-2010SE35457

PATIENT
  Age: 13985 Day
  Sex: Female
  Weight: 108 kg

DRUGS (3)
  1. SEROQUEL [Suspect]
     Indication: SCHIZOAFFECTIVE DISORDER
     Dosage: VARIABLE
     Route: 048
     Dates: start: 20070522, end: 20100901
  2. VALPROIC ACID [Concomitant]
     Indication: SCHIZOAFFECTIVE DISORDER
     Route: 048
     Dates: start: 20070702, end: 20100726
  3. HALOPERIDOL [Concomitant]
     Indication: SCHIZOAFFECTIVE DISORDER
     Route: 048
     Dates: start: 20070701

REACTIONS (1)
  - LEUKOPENIA [None]
